FAERS Safety Report 4517998-3 (Version None)
Quarter: 2004Q4

REPORT INFORMATION
  Report Type: 
  Country: None (occurrence: None)
  Receive Date: 20041130
  Receipt Date: 20041118
  Transmission Date: 20050328
  Serious: Yes (Hospitalization)
  Sender: FDA-Public Use
  Company Number: 2004228326ES

PATIENT
  Age: 47 Year
  Sex: Female
  Weight: 74 kg

DRUGS (7)
  1. PEGVISOMANT POWDER, STERILE (PEGVISOMANT) [Suspect]
     Indication: ACROMEGALY
     Dosage: 15 MG, 1 D, SUBCUTANEOUS
     Route: 058
     Dates: start: 20040401
  2. OMEPRAZOLE [Concomitant]
  3. FENTANYL [Concomitant]
  4. VALPROATE SODIUM [Concomitant]
  5. LEVOTHYROXINE SODIUM [Concomitant]
  6. HYDROCORTISONE [Concomitant]
  7. PHENYTOIN [Concomitant]

REACTIONS (3)
  - GRAND MAL CONVULSION [None]
  - RESPIRATORY TRACT INFECTION [None]
  - STATUS EPILEPTICUS [None]
